FAERS Safety Report 9379674 (Version 5)
Quarter: 2014Q2

REPORT INFORMATION
  Report Type: Spontaneous
  Country: US (occurrence: US)
  Receive Date: 20130702
  Receipt Date: 20140401
  Transmission Date: 20141212
  Serious: Yes (Hospitalization, Other)
  Sender: FDA-Public Use
  Company Number: US-BAXTER-2013BAX025050

PATIENT
  Sex: Male

DRUGS (2)
  1. DIANEAL LOW CALCIUM [Suspect]
     Indication: PERITONEAL DIALYSIS
     Route: 033
     Dates: start: 2012, end: 20130617
  2. DIANEAL LOW CALCIUM [Suspect]
     Route: 033

REACTIONS (4)
  - Umbilical hernia [Recovered/Resolved]
  - Condition aggravated [Recovering/Resolving]
  - Hernia [Recovering/Resolving]
  - Hypoacusis [Unknown]
